FAERS Safety Report 4312409-5 (Version None)
Quarter: 2004Q1

REPORT INFORMATION
  Report Type: 
  Country: None (occurrence: None)
  Receive Date: 20040303
  Receipt Date: 20040224
  Transmission Date: 20041129
  Serious: Yes (Death)
  Sender: FDA-Public Use
  Company Number: 200410090BYL

PATIENT
  Age: 80 Year
  Sex: Male
  Weight: 51 kg

DRUGS (6)
  1. CIPROFLOXACIN [Suspect]
     Indication: PNEUMONIA
     Dosage: 300 MG, BID, INTRAVENOUS DRIP; 300 MG, TOTAL DAILY, INTRAVENO
     Route: 041
     Dates: start: 20040110, end: 20040113
  2. CIPROFLOXACIN [Suspect]
     Indication: PNEUMONIA
     Dosage: 300 MG, BID, INTRAVENOUS DRIP; 300 MG, TOTAL DAILY, INTRAVENO
     Route: 041
     Dates: start: 20040109
  3. MEROPEN [Concomitant]
  4. SOLU-MEDROL [Concomitant]
  5. VENOGLOBULIN-IH [Concomitant]
  6. GASTER [Concomitant]

REACTIONS (2)
  - GENERAL PHYSICAL HEALTH DETERIORATION [None]
  - MULTI-ORGAN FAILURE [None]
